FAERS Safety Report 7546624-4 (Version None)
Quarter: 2011Q2

REPORT INFORMATION
  Report Type: 
  Country: None (occurrence: None)
  Receive Date: 20110614
  Receipt Date: 20110607
  Transmission Date: 20111010
  Serious: Yes (Other)
  Sender: FDA-Public Use
  Company Number: BR-PFIZER INC-2011123580

PATIENT
  Age: 67 Year
  Sex: Male
  Weight: 67 kg

DRUGS (3)
  1. CAVERJECT [Suspect]
     Indication: ERECTILE DYSFUNCTION
     Dosage: UNK
     Route: 017
     Dates: start: 20100101
  2. SERTRALINE [Concomitant]
     Dosage: UNK
     Dates: start: 20080101
  3. CAPTOPRIL [Concomitant]
     Dosage: UNK
     Dates: start: 20010101

REACTIONS (2)
  - DRUG DEPENDENCE [None]
  - PROSTATIC OPERATION [None]
